FAERS Safety Report 14202322 (Version 2)
Quarter: 2017Q4

REPORT INFORMATION
  Report Type: Spontaneous
  Country: BR (occurrence: BR)
  Receive Date: 20171117
  Receipt Date: 20171127
  Transmission Date: 20180321
  Serious: Yes (Hospitalization, Other)
  Sender: FDA-Public Use
  Company Number: BR-PFIZER INC-2017466908

PATIENT
  Age: 71 Year
  Sex: Female
  Weight: 78 kg

DRUGS (6)
  1. VELIJA [Concomitant]
     Active Substance: DULOXETINE HYDROCHLORIDE
     Indication: DEPRESSION
     Dosage: 60 MG, 1X/DAY
  2. LOSARTAN. [Concomitant]
     Active Substance: LOSARTAN
     Indication: HYPERTENSION
     Dosage: 50 MG, 2X/DAY
  3. HYDRALAZINE [Concomitant]
     Active Substance: HYDRALAZINE HYDROCHLORIDE
     Indication: HYPERTENSION
     Dosage: 50 MG, 2X/DAY
  4. LORAZEPAM. [Concomitant]
     Active Substance: LORAZEPAM
     Indication: DEPRESSION
     Dosage: 1MG, ONCE AT NIGHT
  5. SUTENT [Suspect]
     Active Substance: SUNITINIB MALATE
     Indication: RENAL CELL CARCINOMA
     Dosage: 50 MG, ALTERNATE DAY, TAKES FOR 14 DAYS AND STOPS 7
     Route: 048
     Dates: start: 20171006
  6. LIPITOR [Concomitant]
     Active Substance: ATORVASTATIN CALCIUM
     Indication: BLOOD CHOLESTEROL INCREASED
     Dosage: 10 MG, 1X/DAY

REACTIONS (22)
  - Hyperaesthesia [Not Recovered/Not Resolved]
  - Loss of personal independence in daily activities [Not Recovered/Not Resolved]
  - Gastric haemorrhage [Recovered/Resolved]
  - Skin exfoliation [Not Recovered/Not Resolved]
  - Decreased appetite [Not Recovered/Not Resolved]
  - Thyroid disorder [Recovering/Resolving]
  - Gait disturbance [Not Recovered/Not Resolved]
  - Blood pressure increased [Unknown]
  - Mouth haemorrhage [Recovering/Resolving]
  - Headache [Recovered/Resolved]
  - Erythema [Not Recovered/Not Resolved]
  - Inappropriate schedule of drug administration [Unknown]
  - Mouth injury [Not Recovered/Not Resolved]
  - Diarrhoea [Not Recovered/Not Resolved]
  - Pain in extremity [Not Recovered/Not Resolved]
  - Epistaxis [Recovering/Resolving]
  - Nausea [Not Recovered/Not Resolved]
  - Skin papilloma [Recovering/Resolving]
  - Vomiting [Not Recovered/Not Resolved]
  - Abdominal pain [Recovered/Resolved]
  - Peripheral swelling [Not Recovered/Not Resolved]
  - Dysgeusia [Not Recovered/Not Resolved]

NARRATIVE: CASE EVENT DATE: 201710
